FAERS Safety Report 10176621 (Version 1)
Quarter: 2014Q2

REPORT INFORMATION
  Report Type: Spontaneous
  Country: US (occurrence: US)
  Receive Date: 20140516
  Receipt Date: 20140516
  Transmission Date: 20141212
  Serious: No
  Sender: FDA-Public Use
  Company Number: US-PFIZER INC-2014130103

PATIENT
  Age: 56 Year
  Sex: Female
  Weight: 79 kg

DRUGS (3)
  1. ADVIL [Suspect]
     Indication: MIGRAINE
     Dosage: UNK, ONCE
     Route: 048
     Dates: start: 20140511, end: 20140511
  2. FISH OIL [Concomitant]
     Dosage: UNK
  3. VITAMIN D [Concomitant]
     Dosage: UNK

REACTIONS (7)
  - Extra dose administered [Unknown]
  - Wrong technique in drug usage process [Unknown]
  - Drug ineffective [Unknown]
  - Glossodynia [Unknown]
  - Throat irritation [Unknown]
  - Odynophagia [Unknown]
  - Product solubility abnormal [Unknown]
